FAERS Safety Report 5746196-0 (Version None)
Quarter: 2008Q2

REPORT INFORMATION
  Report Type: 
  Country: None (occurrence: None)
  Receive Date: 20080522
  Receipt Date: 20080510
  Transmission Date: 20081010
  Serious: Yes (Life-Threatening, Other)
  Sender: FDA-Public Use
  Company Number: AE-ROCHE-557043

PATIENT
  Age: 20 Year
  Sex: Male

DRUGS (2)
  1. ROACCUTANE [Suspect]
     Route: 048
     Dates: start: 20060101, end: 20060101
  2. INSULIN [Concomitant]
     Dosage: INSULIN PUMP.

REACTIONS (4)
  - ABNORMAL BEHAVIOUR [None]
  - DISORIENTATION [None]
  - HYPOGLYCAEMIA [None]
  - UNEVALUABLE EVENT [None]
